FAERS Safety Report 8137505 (Version 3)
Quarter: 2013Q4

REPORT INFORMATION
  Report Type: Spontaneous
  Country: US (occurrence: US)
  Receive Date: 20110915
  Receipt Date: 20131223
  Transmission Date: 20140711
  Serious: Yes (Other)
  Sender: FDA-Public Use
  Company Number: US-ROCHE-802104

PATIENT
  Sex: Female

DRUGS (2)
  1. ACCUTANE [Suspect]
     Indication: ACNE
     Route: 065
     Dates: start: 19940912, end: 19941204
  2. ACCUTANE [Suspect]
     Route: 065
     Dates: start: 1993, end: 1995

REACTIONS (7)
  - Colitis ulcerative [Unknown]
  - Inflammatory bowel disease [Unknown]
  - Irritable bowel syndrome [Unknown]
  - Injury [Unknown]
  - Rectal polyp [Unknown]
  - Rash [Unknown]
  - Blood cholesterol increased [Unknown]
